FAERS Safety Report 10423375 (Version 1)
Quarter: 2014Q3

REPORT INFORMATION
  Report Type: Spontaneous
  Country: US (occurrence: None)
  Receive Date: 20140722
  Receipt Date: 20140722
  Transmission Date: 20150326
  Serious: No
  Sender: FDA-Public Use
  Company Number: AEGR000403

PATIENT
  Age: 58 Year
  Sex: Male
  Weight: 113.4 kg

DRUGS (4)
  1. BENICAR [Concomitant]
     Active Substance: OLMESARTAN MEDOXOMIL
  2. ZETIA [Concomitant]
     Active Substance: EZETIMIBE
  3. AMBIEN [Concomitant]
     Active Substance: ZOLPIDEM TARTRATE
  4. JUXTAPID [Suspect]
     Active Substance: LOMITAPIDE MESYLATE
     Indication: TYPE IIA HYPERLIPIDAEMIA
     Route: 048
     Dates: start: 20140327

REACTIONS (3)
  - Nausea [None]
  - Vomiting [None]
  - Foreign body [None]

NARRATIVE: CASE EVENT DATE: 20140408
